FAERS Safety Report 16219151 (Version 3)
Quarter: 2019Q4

REPORT INFORMATION
  Report Type: Spontaneous
  Country: US (occurrence: US)
  Receive Date: 20190419
  Receipt Date: 20191129
  Transmission Date: 20200122
  Serious: Yes (Other)
  Sender: FDA-Public Use
  Company Number: US-ASTRAZENECA-2019SE09981

PATIENT
  Sex: Male

DRUGS (33)
  1. OXYCODONE HYDROCHLORIDE. [Concomitant]
     Active Substance: OXYCODONE HYDROCHLORIDE
  2. FOLIC ACID. [Concomitant]
     Active Substance: FOLIC ACID
  3. VALSARTAN. [Concomitant]
     Active Substance: VALSARTAN
  4. ATENOLOL. [Concomitant]
     Active Substance: ATENOLOL
  5. PLENDIL [Concomitant]
     Active Substance: FELODIPINE
  6. IBUPROFEN. [Concomitant]
     Active Substance: IBUPROFEN
  7. VENTOLIN HFA [Concomitant]
     Active Substance: ALBUTEROL SULFATE
  8. DOXAZOSIN [Concomitant]
     Active Substance: DOXAZOSIN MESYLATE
  9. DICYCLOMINE [Concomitant]
     Active Substance: DICYCLOMINE HYDROCHLORIDE
  10. METHOCARBAMOL. [Concomitant]
     Active Substance: METHOCARBAMOL
  11. ALLOPURINOL. [Concomitant]
     Active Substance: ALLOPURINOL
  12. IMITREX [Concomitant]
     Active Substance: SUMATRIPTAN SUCCINATE
  13. PRILOSEC OTC [Suspect]
     Active Substance: OMEPRAZOLE MAGNESIUM
     Indication: GASTROOESOPHAGEAL REFLUX DISEASE
     Route: 048
     Dates: start: 20130808
  14. PREDNISONE. [Concomitant]
     Active Substance: PREDNISONE
  15. CYCLOBENZAPRINE. [Concomitant]
     Active Substance: CYCLOBENZAPRINE
  16. NORVASC [Concomitant]
     Active Substance: AMLODIPINE BESYLATE
  17. DULCOLAX NOS [Concomitant]
     Active Substance: BISACODYL OR DOCUSATE SODIUM
  18. POTASSIUM CHLORIDE. [Concomitant]
     Active Substance: POTASSIUM CHLORIDE
  19. FLUTICASONE PROP [Concomitant]
     Active Substance: FLUTICASONE PROPIONATE
  20. MORPHINE SULFATE. [Concomitant]
     Active Substance: MORPHINE SULFATE
  21. BENICAR [Concomitant]
     Active Substance: OLMESARTAN MEDOXOMIL
  22. DEPO-TESTOSTERONE [Concomitant]
     Active Substance: TESTOSTERONE CYPIONATE
  23. DIAZEPAM. [Concomitant]
     Active Substance: DIAZEPAM
  24. AZITHROMYCIN ANHYDROUS. [Concomitant]
     Active Substance: AZITHROMYCIN ANHYDROUS
  25. CHLORTHALIDONE. [Concomitant]
     Active Substance: CHLORTHALIDONE
  26. OXYCONTIN [Concomitant]
     Active Substance: OXYCODONE HYDROCHLORIDE
  27. HYDROMORPHONE [Concomitant]
     Active Substance: HYDROMORPHONE
  28. DOXAZOSIN MESILATE [Concomitant]
     Active Substance: DOXAZOSIN MESYLATE
  29. ASPIRIN. [Concomitant]
     Active Substance: ASPIRIN
  30. AMOXICILLIN. [Concomitant]
     Active Substance: AMOXICILLIN
  31. NORTRIPTYLINE [Concomitant]
     Active Substance: NORTRIPTYLINE
  32. METAMUCIL [Concomitant]
     Active Substance: PLANTAGO SEED
  33. COLCHICINE. [Concomitant]
     Active Substance: COLCHICINE

REACTIONS (5)
  - Renal impairment [Unknown]
  - Renal injury [Unknown]
  - Renal failure [Unknown]
  - Rebound acid hypersecretion [Unknown]
  - Chronic kidney disease [Unknown]
